FAERS Safety Report 12009805 (Version 1)
Quarter: 2016Q1

REPORT INFORMATION
  Report Type: Report from Study
  Country: None (occurrence: US)
  Receive Date: 20160205
  Receipt Date: 20160205
  Transmission Date: 20160526
  Serious: Yes (Hospitalization)
  Sender: FDA-Public Use
  Company Number: US-BIOVITRUM-2015US0524

PATIENT
  Age: 21 Year
  Sex: Male
  Weight: 52.21 kg

DRUGS (3)
  1. ORFADIN [Suspect]
     Active Substance: NITISINONE
     Dosage: 4*10 MG TWICE DAILY
     Route: 048
     Dates: start: 20150514
  2. ORFADIN [Suspect]
     Active Substance: NITISINONE
     Indication: TYROSINAEMIA
     Route: 048
     Dates: start: 20140513
  3. ORFADIN [Suspect]
     Active Substance: NITISINONE
     Dosage: 5*10 MG DAILY
     Route: 048

REACTIONS (2)
  - Deposit eye [Not Recovered/Not Resolved]
  - Hiatus hernia [Unknown]

NARRATIVE: CASE EVENT DATE: 201412
